FAERS Safety Report 15675171 (Version 3)
Quarter: 2019Q1

REPORT INFORMATION
  Report Type: Report from Study
  Country: IL (occurrence: IL)
  Receive Date: 20181130
  Receipt Date: 20190206
  Transmission Date: 20190417
  Serious: Yes (Other)
  Sender: FDA-Public Use
  Company Number: IL-ROCHE-2221785

PATIENT
  Age: 61 Year
  Sex: Female
  Weight: 81 kg

DRUGS (10)
  1. APIDRA [Concomitant]
     Active Substance: INSULIN GLULISINE
     Route: 058
     Dates: start: 20190121
  2. ELATROL [Concomitant]
     Route: 048
     Dates: start: 2016
  3. AUGMENTIN [Concomitant]
     Active Substance: AMOXICILLIN\CLAVULANATE POTASSIUM
     Route: 048
     Dates: start: 20181125, end: 20181204
  4. OPTALGIN [Concomitant]
     Active Substance: METAMIZOLE
     Route: 048
     Dates: start: 20180911
  5. JARRO-DOPHILUS [Concomitant]
     Route: 048
     Dates: start: 20190121
  6. JARDIANCE DUO [Concomitant]
     Active Substance: EMPAGLIFLOZIN\METFORMIN HYDROCHLORIDE
     Route: 048
     Dates: start: 20190110, end: 20190120
  7. RAMIPRIL. [Concomitant]
     Active Substance: RAMIPRIL
     Route: 048
     Dates: start: 2010
  8. DIPROSPAN [Concomitant]
     Active Substance: BETAMETHASONE DIPROPIONATE\BETAMETHASONE SODIUM PHOSPHATE
     Route: 058
     Dates: start: 20190119, end: 20190119
  9. JARDIANCE [Concomitant]
     Active Substance: EMPAGLIFLOZIN
     Route: 048
     Dates: start: 20190107, end: 20190109
  10. ATEZOLIZUMAB. [Suspect]
     Active Substance: ATEZOLIZUMAB
     Indication: RENAL CELL CARCINOMA
     Dosage: ON 05/NOV/2018, AT 12 12 SHE RECEIVED HER MOST RECENT DOSE OF ATEZOLIZUMAB PRIOR TO EVENT ONSET.?ON
     Route: 042
     Dates: start: 20180502

REACTIONS (1)
  - Type 2 diabetes mellitus [Not Recovered/Not Resolved]

NARRATIVE: CASE EVENT DATE: 20181015
